FAERS Safety Report 8415613-X (Version None)
Quarter: 2012Q2

REPORT INFORMATION
  Report Type: 
  Country: None (occurrence: None)
  Receive Date: 20120606
  Receipt Date: 20120530
  Transmission Date: 20120825
  Serious: Yes (Other)
  Sender: FDA-Public Use
  Company Number: RU-BRISTOL-MYERS SQUIBB COMPANY-16220022

PATIENT
  Age: 58 Year
  Sex: Male

DRUGS (3)
  1. TRENTAL [Concomitant]
  2. OMEZ [Concomitant]
  3. ERBITUX [Suspect]
     Indication: COLON CANCER
     Dosage: 07SEP10-08FEB11(154DAYS) 8 COURSES 13OCT11, 20OCT11,13OCT11-27OCT11;14D
     Route: 042
     Dates: start: 20100907, end: 20111027

REACTIONS (2)
  - BLOOD BILIRUBIN INCREASED [None]
  - HAEMOGLOBIN INCREASED [None]
